FAERS Safety Report 6143239-X (Version None)
Quarter: 2009Q2

REPORT INFORMATION
  Report Type: 
  Country: None (occurrence: None)
  Receive Date: 20090403
  Receipt Date: 20090331
  Transmission Date: 20091009
  Serious: Yes (Hospitalization)
  Sender: FDA-Public Use
  Company Number: DE-MERCK-0904DEU00004

PATIENT
  Sex: Female

DRUGS (3)
  1. JANUVIA [Suspect]
     Route: 065
  2. CITALOPRAM [Concomitant]
     Route: 065
  3. LEVOTHYROXINE SODIUM [Concomitant]
     Route: 065

REACTIONS (1)
  - ADVERSE EVENT [None]
